FAERS Safety Report 7091098-3 (Version None)
Quarter: 2010Q4

REPORT INFORMATION
  Report Type: 
  Country: None (occurrence: None)
  Receive Date: 20101109
  Receipt Date: 20101104
  Transmission Date: 20110411
  Serious: Yes (Death, Other)
  Sender: FDA-Public Use
  Company Number: PHHY2010JP74588

PATIENT
  Age: 20 Year
  Sex: Female

DRUGS (6)
  1. CYCLOSPORINE [Suspect]
     Indication: STEM CELL TRANSPLANT
     Dosage: 3MG/KG
  2. MYCOPHENOLATE MOFETIL [Concomitant]
     Dosage: 15MG/KG
  3. PREDNISOLONE [Concomitant]
     Dosage: 2MG/KG
  4. FLUDARABINE PHOSPHATE [Concomitant]
     Dosage: 25MG/M2
  5. BUSULFAN [Concomitant]
     Dosage: 3.2MG/M2
  6. MELPHALAN HYDROCHLORIDE [Concomitant]
     Dosage: 70MG/M2

REACTIONS (12)
  - ABDOMINAL DISTENSION [None]
  - ACUTE RESPIRATORY FAILURE [None]
  - ALANINE AMINOTRANSFERASE INCREASED [None]
  - ASPARTATE AMINOTRANSFERASE INCREASED [None]
  - BLOOD BILIRUBIN INCREASED [None]
  - CHRONIC GRAFT VERSUS HOST DISEASE [None]
  - DIARRHOEA [None]
  - FIBRIN DEGRADATION PRODUCTS INCREASED [None]
  - INTERSTITIAL LUNG DISEASE [None]
  - MECHANICAL VENTILATION [None]
  - OEDEMA PERIPHERAL [None]
  - PYREXIA [None]
